FAERS Safety Report 17162703 (Version 1)
Quarter: 2019Q4

REPORT INFORMATION
  Report Type: Spontaneous
  Country: US (occurrence: US)
  Receive Date: 20191216
  Receipt Date: 20191216
  Transmission Date: 20200122
  Serious: Yes (Hospitalization)
  Sender: FDA-Public Use
  Company Number: None

PATIENT
  Age: 64 Year
  Sex: Female

DRUGS (10)
  1. MELOXICAM 15 MG TABLET [Concomitant]
     Active Substance: MELOXICAM
     Dates: start: 20190610
  2. OMEPRAZOLE 20 CAPSULE [Concomitant]
     Dates: start: 20190722
  3. POT CL MICROS 10 MEG CR TABLET [Concomitant]
     Dates: start: 20190722
  4. LAMOTRIGINE 200 MG TABLETS [Concomitant]
     Active Substance: LAMOTRIGINE
     Dates: start: 20190318
  5. GABEPENTIN 300 MG CAPSULE [Concomitant]
     Dates: start: 20190326
  6. VALSART.HCTZ 320-25MG TABLET [Concomitant]
     Dates: start: 20190423
  7. ATORVASTATIN 10 MG TABLET [Concomitant]
     Dates: start: 20190903
  8. OLANZAPINE 5MG TABLET [Concomitant]
     Active Substance: OLANZAPINE
     Dates: start: 20191214
  9. AUSTEDO [Suspect]
     Active Substance: DEUTETRABENAZINE
     Indication: DYSTONIA
     Route: 048
     Dates: start: 20190516
  10. METFORMIN 500 MG TABLET [Concomitant]
     Dates: start: 20190423

REACTIONS (1)
  - Spinal fusion surgery [None]

NARRATIVE: CASE EVENT DATE: 20191213
